FAERS Safety Report 9192258 (Version 2)
Quarter: 2013Q2

REPORT INFORMATION
  Report Type: Spontaneous
  Country: SG (occurrence: SG)
  Receive Date: 20130327
  Receipt Date: 20130423
  Transmission Date: 20140414
  Serious: Yes (Other)
  Sender: FDA-Public Use
  Company Number: SG-009507513-1303SGP012543

PATIENT
  Sex: Female

DRUGS (1)
  1. IMPLANON [Suspect]
     Dosage: UNK
     Route: 059
     Dates: start: 20121015

REACTIONS (4)
  - Abortion [Recovering/Resolving]
  - Ovarian cyst [Recovering/Resolving]
  - Unintended pregnancy [Unknown]
  - Drug ineffective [Unknown]
